FAERS Safety Report 7269826-3 (Version None)
Quarter: 2011Q1

REPORT INFORMATION
  Report Type: 
  Country: None (occurrence: None)
  Receive Date: 20110202
  Receipt Date: 20110131
  Transmission Date: 20110831
  Serious: Yes (Life-Threatening, Hospitalization, Disabling)
  Sender: FDA-Public Use
  Company Number: GB-AMGEN-UK235079

PATIENT
  Age: 55 Year
  Sex: Female

DRUGS (12)
  1. NEULASTA [Concomitant]
  2. CYCLOPHOSPHAMIDE [Suspect]
     Dosage: 700 MG, UNK
     Route: 042
     Dates: start: 20060412
  3. TRIMETHOPRIM + SULFAMETHOXAZOLE [Concomitant]
  4. ZOLPIDEM [Concomitant]
  5. ANTIVIRALS NOS [Suspect]
  6. NEUPOGEN [Suspect]
     Indication: NEUTROPENIA
     Dosage: 30 MILLION UNIT, UNK
     Route: 042
     Dates: start: 20061023
  7. FLUDARABINE PHOSPHATE [Suspect]
     Dosage: 25 MG, UNK
     Dates: start: 20060823
  8. ALPRAZOLAM [Concomitant]
  9. VALACICLOVIR [Concomitant]
  10. AZACITIDINE [Suspect]
  11. RITUXIMAB [Suspect]
     Dosage: 375 MG, UNK
     Dates: start: 20060412
  12. ANTIFUNGALS FOR SYSTEMIC USE [Suspect]

REACTIONS (2)
  - LUNG DISORDER [None]
  - PULMONARY FIBROSIS [None]
